FAERS Safety Report 23013140 (Version 3)
Quarter: 2023Q4

REPORT INFORMATION
  Report Type: Spontaneous
  Country: US (occurrence: US)
  Receive Date: 20230930
  Receipt Date: 20231102
  Transmission Date: 20240109
  Serious: No
  Sender: FDA-Public Use
  Company Number: US-SUN PHARMACEUTICAL INDUSTRIES LTD-2023R1-410404

PATIENT
  Sex: Male

DRUGS (1)
  1. PSEUDOEPHEDRINE [Suspect]
     Active Substance: PSEUDOEPHEDRINE
     Indication: Nasal decongestion therapy
     Dosage: UNK
     Route: 045

REACTIONS (2)
  - Drug ineffective [Unknown]
  - Pollakiuria [Unknown]
